FAERS Safety Report 10268692 (Version 2)
Quarter: 2014Q2

REPORT INFORMATION
  Report Type: Report from Study
  Country: US (occurrence: US)
  Receive Date: 20140630
  Receipt Date: 20140630
  Transmission Date: 20141212
  Serious: No
  Sender: FDA-Public Use
  Company Number: US-FRI-1000058567

PATIENT
  Age: 48 Year
  Sex: Female
  Weight: 69.5 kg

DRUGS (11)
  1. DEPAKOTE [Concomitant]
     Indication: BIPOLAR I DISORDER
     Dosage: 500 MG
     Route: 048
     Dates: start: 201012, end: 20130924
  2. PRINIVIL [Concomitant]
     Indication: HYPERTENSION
     Dosage: 5 MG
     Route: 048
     Dates: start: 201112
  3. PRILOSEC [Concomitant]
     Indication: GASTROOESOPHAGEAL REFLUX DISEASE
     Dosage: 40 MG
     Route: 048
     Dates: start: 201212
  4. CLEAR EYES OUTDOOR DRY EYE PROTECTION [Concomitant]
     Indication: DRY EYE
     Route: 031
     Dates: start: 2008
  5. OXYBUTYNIN [Concomitant]
     Dates: start: 201111
  6. PREDNISONE [Concomitant]
     Dates: start: 201307
  7. VITAMIN B COMPLEX [Concomitant]
     Dates: start: 1990
  8. LORAZEPAM [Concomitant]
     Dates: start: 20130924, end: 20131003
  9. DIPHENHYDRAMINE HYDROCHLORIDE [Concomitant]
     Dates: start: 2010, end: 20130924
  10. IBUPROFEN [Concomitant]
     Dates: start: 2009
  11. ASENAPINE [Suspect]
     Indication: BIPOLAR I DISORDER
     Route: 060
     Dates: start: 20131001, end: 20131022

REACTIONS (2)
  - Pruritus [Recovered/Resolved]
  - Pruritus [Recovered/Resolved]
